FAERS Safety Report 7560725-6 (Version None)
Quarter: 2011Q2

REPORT INFORMATION
  Report Type: 
  Country: None (occurrence: None)
  Receive Date: 20110621
  Receipt Date: 20110606
  Transmission Date: 20111010
  Serious: Yes (Hospitalization)
  Sender: FDA-Public Use
  Company Number: JP-WATSON-2011-08186

PATIENT
  Age: 70 Year
  Sex: Female

DRUGS (5)
  1. PREDNISOLONE [Suspect]
     Indication: MULTIPLE MYELOMA
     Route: 065
  2. DOXORUBICIN HCL [Suspect]
     Indication: MULTIPLE MYELOMA
     Route: 065
  3. VINCRISTINE [Suspect]
     Indication: MULTIPLE MYELOMA
     Route: 065
  4. DEXAMETHASONE [Suspect]
     Indication: MULTIPLE MYELOMA
     Route: 065
  5. MELPHALAN HYDROCHLORIDE [Suspect]
     Indication: MULTIPLE MYELOMA
     Route: 065

REACTIONS (2)
  - EPSTEIN-BARR VIRUS INFECTION [None]
  - TYPE 1 DIABETES MELLITUS [None]
